FAERS Safety Report 8621354 (Version 4)
Quarter: 2012Q4

REPORT INFORMATION
  Report Type: 
  Country: US (occurrence: US)
  Receive Date: 20120619
  Receipt Date: 20120927
  Transmission Date: 20130627
  Serious: Yes (Other)
  Sender: FDA-Public Use
  Company Number: US-TEVA-342844USA

PATIENT
  Age: 23 None
  Sex: Female

DRUGS (3)
  1. CLARAVIS [Suspect]
     Dosage: 40 Milligram Daily;
     Route: 048
     Dates: start: 20120321, end: 20120614
  2. EVRA [Concomitant]
     Route: 062
  3. ONE STEP [Concomitant]

REACTIONS (2)
  - Abortion spontaneous [Recovered/Resolved]
  - Unintended pregnancy [Recovered/Resolved]
